FAERS Safety Report 13700159 (Version 2)
Quarter: 2017Q3

REPORT INFORMATION
  Report Type: Spontaneous
  Country: FR (occurrence: FR)
  Receive Date: 20170629
  Receipt Date: 20170809
  Transmission Date: 20171127
  Serious: Yes (Other)
  Sender: FDA-Public Use
  Company Number: FR-VIFOR (INTERNATIONAL) INC.-VIT-2017-06775

PATIENT
  Sex: Male

DRUGS (13)
  1. MIRCERA [Suspect]
     Active Substance: METHOXY POLYETHYLENE GLYCOL-EPOETIN BETA
     Route: 058
     Dates: start: 2017
  2. MIRCERA [Suspect]
     Active Substance: METHOXY POLYETHYLENE GLYCOL-EPOETIN BETA
     Route: 058
     Dates: start: 2017
  3. EUPRESSYL [Concomitant]
     Active Substance: URAPIDIL
  4. ZYLORIC [Concomitant]
     Active Substance: ALLOPURINOL
  5. HYPERIUM [Concomitant]
     Active Substance: RILMENIDINE PHOSPHATE
  6. MIRCERA [Suspect]
     Active Substance: METHOXY POLYETHYLENE GLYCOL-EPOETIN BETA
     Indication: NEPHROGENIC ANAEMIA
     Route: 058
     Dates: start: 2016
  7. EUPRESSYL [Concomitant]
     Active Substance: URAPIDIL
  8. ZYLORIC [Concomitant]
     Active Substance: ALLOPURINOL
  9. MIRCERA [Suspect]
     Active Substance: METHOXY POLYETHYLENE GLYCOL-EPOETIN BETA
     Route: 058
  10. INEGY [Concomitant]
     Active Substance: EZETIMIBE\SIMVASTATIN
  11. EXFORGE [Concomitant]
     Active Substance: AMLODIPINE BESYLATE\VALSARTAN
  12. IRON [Concomitant]
     Active Substance: IRON
     Route: 041
  13. LASIX [Concomitant]
     Active Substance: FUROSEMIDE

REACTIONS (5)
  - Blood pressure fluctuation [Not Recovered/Not Resolved]
  - Injection site pain [Not Recovered/Not Resolved]
  - Off label use [Unknown]
  - Arrhythmia [Unknown]
  - Product use issue [Unknown]
